FAERS Safety Report 20665228 (Version 3)
Quarter: 2023Q2

REPORT INFORMATION
  Report Type: Report from Study
  Country: US (occurrence: US)
  Receive Date: 20220401
  Receipt Date: 20230602
  Transmission Date: 20230722
  Serious: Yes (Other)
  Sender: FDA-Public Use
  Company Number: US-VERTEX PHARMACEUTICALS-2022-003142

PATIENT
  Age: 11 Year
  Sex: Female

DRUGS (2)
  1. TRIKAFTA [Suspect]
     Active Substance: ELEXACAFTOR\IVACAFTOR\TEZACAFTOR
     Indication: Cystic fibrosis
     Dosage: 2 ORANGE TABS AM, 1 BLUE TAB PM
     Route: 048
     Dates: start: 20210812, end: 20220218
  2. TRIKAFTA [Suspect]
     Active Substance: ELEXACAFTOR\IVACAFTOR\TEZACAFTOR
     Dosage: HALF DOSE
     Route: 048
     Dates: start: 202205, end: 2022

REACTIONS (10)
  - Intracranial pressure increased [Recovering/Resolving]
  - Abdominal pain upper [Unknown]
  - Fatigue [Not Recovered/Not Resolved]
  - Strabismus [Recovering/Resolving]
  - Asthenopia [Recovering/Resolving]
  - Musculoskeletal stiffness [Unknown]
  - Pharyngitis streptococcal [Unknown]
  - Nausea [Unknown]
  - Motion sickness [Unknown]
  - Chalazion [Unknown]

NARRATIVE: CASE EVENT DATE: 20220201
